FAERS Safety Report 8611028-X (Version None)
Quarter: 2012Q3

REPORT INFORMATION
  Report Type: 
  Country: None (occurrence: None)
  Receive Date: 20120822
  Receipt Date: 20120816
  Transmission Date: 20120928
  Serious: Yes (Other)
  Sender: FDA-Public Use
  Company Number: US-PFIZER INC-2012201459

PATIENT
  Age: 57 Year
  Sex: Female
  Weight: 60.771 kg

DRUGS (2)
  1. ADVIL [Suspect]
     Indication: MIGRAINE
  2. ADVIL [Suspect]
     Indication: HEADACHE
     Dosage: UNK, AS NEEDED
     Route: 048
     Dates: start: 19910101

REACTIONS (1)
  - BASEDOW'S DISEASE [None]
